FAERS Safety Report 9808568 (Version 1)
Quarter: 2014Q1

REPORT INFORMATION
  Report Type: Report from Study
  Country: US (occurrence: US)
  Receive Date: 20140110
  Receipt Date: 20140110
  Transmission Date: 20141002
  Serious: Yes (Other)
  Sender: FDA-Public Use
  Company Number: US-TEVA-454558USA

PATIENT
  Sex: Male

DRUGS (5)
  1. BACLOFEN [Suspect]
     Indication: MUSCLE SPASMS
     Dosage: 10 MILLIGRAM DAILY;
     Route: 048
     Dates: start: 20130918, end: 201310
  2. NAPROXEN [Suspect]
     Indication: HEADACHE
     Dosage: PRN
  3. AMPYRA [Suspect]
     Dosage: 20 MILLIGRAM DAILY;
     Dates: start: 201303
  4. ARICEPT [Concomitant]
  5. COPAXONE [Concomitant]
     Route: 058

REACTIONS (2)
  - Confusional state [Recovered/Resolved]
  - Muscle spasms [Recovered/Resolved]
